FAERS Safety Report 7705261-9 (Version None)
Quarter: 2011Q3

REPORT INFORMATION
  Report Type: 
  Country: None (occurrence: None)
  Receive Date: 20110822
  Receipt Date: 20110822
  Transmission Date: 20111222
  Serious: No
  Sender: FDA-Public Use
  Company Number: None

PATIENT
  Age: 63 Year
  Sex: Male
  Weight: 75 kg

DRUGS (1)
  1. DALFAMPRIDINE [Suspect]
     Indication: ATAXIA
     Dosage: 10 MG BID PO
     Route: 048
     Dates: start: 20110222, end: 20110302

REACTIONS (2)
  - ANGIOEDEMA [None]
  - INSOMNIA [None]
